FAERS Safety Report 4447451-7 (Version None)
Quarter: 2004Q3

REPORT INFORMATION
  Report Type: 
  Country: None (occurrence: None)
  Receive Date: 20040913
  Receipt Date: 20040723
  Transmission Date: 20050211
  Serious: Yes (Hospitalization)
  Sender: FDA-Public Use
  Company Number: JP-JNJFOC-20040102849

PATIENT
  Sex: Female
  Weight: 57 kg

DRUGS (15)
  1. REMICADE [Suspect]
     Route: 041
     Dates: start: 20030815, end: 20031121
  2. REMICADE [Suspect]
     Route: 041
     Dates: start: 20030815, end: 20031121
  3. REMICADE [Suspect]
     Route: 041
     Dates: start: 20030815, end: 20031121
  4. REMICADE [Suspect]
     Indication: RHEUMATOID ARTHRITIS
     Route: 041
     Dates: start: 20030815, end: 20031121
  5. ARAVA [Suspect]
     Indication: DRUG USE FOR UNKNOWN INDICATION
     Route: 049
     Dates: start: 20040110, end: 20040112
  6. RHEUMATREX [Concomitant]
     Route: 049
     Dates: start: 20030107
  7. RHEUMATREX [Concomitant]
     Route: 049
     Dates: start: 20030107
  8. PREDONINE [Concomitant]
     Dosage: START DATE 31-OCT (YEAR UNSPECIFIED).
     Route: 049
  9. PREDONINE [Concomitant]
     Dosage: 26-SEP TO 31-OCT (YEAR UNSPECIFIED)
     Route: 049
  10. PREDONINE [Concomitant]
     Dosage: 29-AUG TO 26-SEP (YEAR UNSPECIFIED)
     Route: 049
  11. LOXONINE [Concomitant]
     Route: 049
  12. ADOFEED [Concomitant]
     Route: 058
  13. FOLIAMIN [Concomitant]
     Route: 049
  14. SELBEX [Concomitant]
     Route: 049
  15. GASTER D [Concomitant]
     Route: 049

REACTIONS (6)
  - DIARRHOEA [None]
  - DRUG EFFECT DECREASED [None]
  - DRUG INEFFECTIVE [None]
  - PYREXIA [None]
  - THERAPEUTIC RESPONSE DECREASED [None]
  - VOMITING [None]
